FAERS Safety Report 9163452 (Version 1)
Quarter: 2013Q1

REPORT INFORMATION
  Report Type: Spontaneous
  Country: US (occurrence: None)
  Receive Date: 20130221
  Receipt Date: 20130221
  Transmission Date: 20140127
  Serious: Yes (Other)
  Sender: FDA-Public Use
  Company Number: EUS-2013-00060

PATIENT
  Sex: Male

DRUGS (2)
  1. QUADRAMET [Suspect]
     Indication: METASTASES TO BONE
     Dosage: 18.5 MBQ/KG (0.5 MCI/KG) IN WEEK 1
  2. ZOMETA [Concomitant]

REACTIONS (1)
  - Hypoxia [None]
